FAERS Safety Report 4530561-3 (Version None)
Quarter: 2004Q4

REPORT INFORMATION
  Report Type: 
  Country: None (occurrence: None)
  Receive Date: 20041217
  Receipt Date: 20041217
  Transmission Date: 20050328
  Serious: Yes (Other)
  Sender: FDA-Public Use
  Company Number: None

PATIENT
  Age: 53 Year
  Sex: Female
  Weight: 73.9363 kg

DRUGS (3)
  1. PAXIL [Suspect]
     Indication: DEPRESSION
     Dates: start: 19960201, end: 20041214
  2. PAXIL [Suspect]
     Indication: MIGRAINE
     Dates: start: 19960201, end: 20041214
  3. PAXIL [Suspect]
     Indication: PANIC ATTACK
     Dates: start: 19960201, end: 20041214

REACTIONS (8)
  - ANGER [None]
  - BONE PAIN [None]
  - DRUG WITHDRAWAL SYNDROME [None]
  - DYSKINESIA [None]
  - FEELING ABNORMAL [None]
  - IMPAIRED DRIVING ABILITY [None]
  - MYALGIA [None]
  - PRURITUS [None]
